FAERS Safety Report 6244271-8 (Version None)
Quarter: 2009Q2

REPORT INFORMATION
  Report Type: 
  Country: None (occurrence: None)
  Receive Date: 20090625
  Receipt Date: 20090324
  Transmission Date: 20091009
  Serious: No
  Sender: FDA-Public Use
  Company Number: US-KINGPHARMUSA00001-K200900337

PATIENT
  Sex: Male
  Weight: 68.027 kg

DRUGS (4)
  1. BICILLIN L-A [Suspect]
     Indication: TERTIARY SYPHILIS
     Dosage: 1200000 IU, SINGLE
     Route: 030
     Dates: start: 20090317
  2. BICILLIN L-A [Suspect]
     Dosage: UNK
  3. HALOPERIDOL [Concomitant]
     Dosage: 5 MG IN AM, 10 MG AT BEDTIME
  4. IBUPROFEN [Concomitant]
     Dosage: 800 MG, TID

REACTIONS (2)
  - DRUG ADMINISTRATION ERROR [None]
  - NO ADVERSE EVENT [None]
